FAERS Safety Report 14768599 (Version 4)
Quarter: 2018Q2

REPORT INFORMATION
  Report Type: Spontaneous
  Country: EG (occurrence: EG)
  Receive Date: 20180417
  Receipt Date: 20180425
  Transmission Date: 20180711
  Serious: Yes (Other)
  Sender: FDA-Public Use
  Company Number: PHHY2018EG066109

PATIENT
  Age: 82 Year
  Sex: Male
  Weight: 75 kg

DRUGS (1)
  1. DICLAC [Suspect]
     Active Substance: DICLOFENAC
     Indication: TOOTHACHE
     Dosage: 1 DF, Q12H
     Route: 048
     Dates: start: 20180227, end: 20180302

REACTIONS (7)
  - Abdominal pain upper [Unknown]
  - Reflux laryngitis [Unknown]
  - Hypotension [Unknown]
  - Gastritis [Recovered/Resolved with Sequelae]
  - Dysgeusia [Unknown]
  - Gastric haemorrhage [Recovered/Resolved with Sequelae]
  - Melaena [Unknown]

NARRATIVE: CASE EVENT DATE: 201803
